FAERS Safety Report 10495399 (Version 2)
Quarter: 2014Q4

REPORT INFORMATION
  Report Type: Spontaneous
  Country: DK (occurrence: DK)
  Receive Date: 20141003
  Receipt Date: 20141003
  Transmission Date: 20150528
  Serious: Yes (Other)
  Sender: FDA-Public Use
  Company Number: DK-EISAI MEDICAL RESEARCH-EC-2014-000272

PATIENT
  Age: 7 Year
  Sex: Female
  Weight: 33 kg

DRUGS (4)
  1. KEPPRA [Concomitant]
     Active Substance: LEVETIRACETAM
  2. FYCOMPA [Suspect]
     Active Substance: PERAMPANEL
     Indication: EPILEPSY
     Dosage: TITRATED UP (TITRATION DOSING UNSPECIFIED)
     Route: 048
     Dates: start: 201403, end: 201403
  3. FYCOMPA [Suspect]
     Active Substance: PERAMPANEL
     Route: 048
     Dates: start: 201403, end: 201404
  4. OXCARBAMAZEPINE [Concomitant]
     Active Substance: OXCARBAZEPINE

REACTIONS (2)
  - Psychotic behaviour [Recovered/Resolved]
  - Self injurious behaviour [None]

NARRATIVE: CASE EVENT DATE: 201403
